APPROVED DRUG PRODUCT: BACTOCILL
Active Ingredient: OXACILLIN SODIUM
Strength: EQ 2GM BASE/VIAL **Federal Register determination that product was not discontinued or withdrawn for safety or effectiveness reasons**
Dosage Form/Route: INJECTABLE;INJECTION
Application: A061334 | Product #007
Applicant: GLAXOSMITHKLINE
Approved: Mar 26, 1982 | RLD: No | RS: No | Type: DISCN